FAERS Safety Report 6071967-3 (Version None)
Quarter: 2009Q1

REPORT INFORMATION
  Report Type: 
  Country: None (occurrence: None)
  Receive Date: 20090205
  Receipt Date: 20090205
  Transmission Date: 20090719
  Serious: Yes (Other)
  Sender: FDA-Public Use
  Company Number: None

PATIENT
  Age: 64 Year
  Sex: Female
  Weight: 61.2356 kg

DRUGS (1)
  1. BONIVA [Suspect]
     Indication: OSTEOPOROSIS
     Dosage: 150 MG ONCE A MONTH PO
     Route: 048
     Dates: start: 20060415, end: 20080820

REACTIONS (5)
  - DENTAL PULP DISORDER [None]
  - JAW DISORDER [None]
  - MALOCCLUSION [None]
  - PAIN IN JAW [None]
  - TOOTH FRACTURE [None]
